FAERS Safety Report 15476886 (Version 1)
Quarter: 2018Q4

REPORT INFORMATION
  Report Type: Spontaneous
  Country: US (occurrence: US)
  Receive Date: 20181001
  Receipt Date: 20181001
  Transmission Date: 20190205
  Serious: Yes (Disabling, Other)
  Sender: FDA-Public Use
  Company Number: None

PATIENT
  Age: 65 Year
  Sex: Female
  Weight: 63.5 kg

DRUGS (9)
  1. LEXAPRO [Concomitant]
     Active Substance: ESCITALOPRAM OXALATE
  2. CQ10 [Concomitant]
     Active Substance: UBIDECARENONE
  3. GINKO BALOBA [Concomitant]
  4. PREBIOTICS [Concomitant]
  5. VITAMIN D [Concomitant]
     Active Substance: CHOLECALCIFEROL
  6. PROBIOTICS [Concomitant]
     Active Substance: PROBIOTICS NOS
  7. MULTI-VITAMIN [Concomitant]
     Active Substance: .ALPHA.-TOCOPHEROL ACETATE, DL-\ASCORBIC ACID\CYANOCOBALAMIN\FLUORIDE ION\FOLIC ACID\NIACIN\PYRIDOXINE\RIBOFLAVIN\THIAMINE\VITAMIN A\VITAMIN D
  8. OTEZLA [Suspect]
     Active Substance: APREMILAST
     Indication: PSORIASIS
     Dosage: ?          QUANTITY:2 TABLETS ;OTHER FREQUENCY:2 X DAY IN AM + PM;?
     Route: 048
     Dates: start: 20180701, end: 20180928
  9. BABY ASPIRIN [Concomitant]
     Active Substance: ASPIRIN

REACTIONS (8)
  - Respiratory disorder [None]
  - Headache [None]
  - Herpes zoster [None]
  - Nasopharyngitis [None]
  - Depression [None]
  - Feeling abnormal [None]
  - Influenza like illness [None]
  - Diarrhoea [None]

NARRATIVE: CASE EVENT DATE: 20180808
